FAERS Safety Report 8315764-4 (Version None)
Quarter: 2012Q2

REPORT INFORMATION
  Report Type: 
  Country: None (occurrence: None)
  Receive Date: 20120426
  Receipt Date: 20120423
  Transmission Date: 20120825
  Serious: Yes (Other)
  Sender: FDA-Public Use
  Company Number: US-AMGEN-USASP2012015955

PATIENT
  Age: 63 Year
  Sex: Female

DRUGS (7)
  1. LOVAZA [Concomitant]
  2. VITAMIN D [Concomitant]
  3. LIPITOR [Concomitant]
  4. VITAMIN D [Concomitant]
  5. PROLIA [Suspect]
     Indication: OSTEOPOROSIS POSTMENOPAUSAL
     Dosage: 60 MG, Q6MO
     Dates: start: 20110401
  6. METFORMIN [Concomitant]
  7. LEVEZA [Concomitant]

REACTIONS (4)
  - INAPPROPRIATE SCHEDULE OF DRUG ADMINISTRATION [None]
  - SINUS DISORDER [None]
  - BONE FORMATION INCREASED [None]
  - DENTAL IMPLANTATION [None]
